FAERS Safety Report 6306856-X (Version None)
Quarter: 2009Q3

REPORT INFORMATION
  Report Type: 
  Country: None (occurrence: None)
  Receive Date: 20090812
  Receipt Date: 20090731
  Transmission Date: 20100115
  Serious: Yes (Hospitalization)
  Sender: FDA-Public Use
  Company Number: IE-PFIZER INC-2009220024

PATIENT
  Age: 65 Year

DRUGS (6)
  1. CARDURA [Suspect]
     Indication: HYPERTENSION
     Dosage: 8 MG, UNK
     Route: 048
     Dates: start: 20090522, end: 20090526
  2. ZESTORETIC [Concomitant]
     Dosage: 20 MG, UNK
     Route: 048
  3. ZOLPIDEM [Concomitant]
     Dosage: UNK
     Route: 048
  4. ISTIN [Concomitant]
     Dosage: 10 MG, UNK
     Route: 048
  5. LIORESAL [Concomitant]
     Dosage: 10 MG, 4X/DAY
     Route: 048
  6. LIPITOR [Concomitant]
     Dosage: 10 MG, UNK
     Route: 048

REACTIONS (4)
  - BLOOD SODIUM DECREASED [None]
  - HYPOTENSION [None]
  - PRESYNCOPE [None]
  - WHITE BLOOD CELL COUNT INCREASED [None]
